FAERS Safety Report 7875712-8 (Version None)
Quarter: 2011Q4

REPORT INFORMATION
  Report Type: 
  Country: None (occurrence: None)
  Receive Date: 20111031
  Receipt Date: 20111019
  Transmission Date: 20120403
  Serious: Yes (Disabling)
  Sender: FDA-Public Use
  Company Number: FR-CELGENEUS-056-20785-11102048

PATIENT
  Sex: Female

DRUGS (17)
  1. VALACYCLOVIR HYDROCHLORIDE [Concomitant]
  2. BACTRIM [Concomitant]
  3. THALIDOMIDE [Suspect]
     Indication: MULTIPLE MYELOMA
     Dosage: 100 MILLIGRAM
     Route: 048
     Dates: start: 20110705, end: 20110715
  4. VELCADE [Suspect]
     Indication: MULTIPLE MYELOMA
     Dosage: 2 MILLIGRAM
     Route: 041
     Dates: start: 20110525
  5. DEXAMETHASONE [Suspect]
     Indication: MULTIPLE MYELOMA
     Dosage: 40 MILLIGRAM
     Route: 065
     Dates: start: 20110525
  6. ASPEGIC 325 [Concomitant]
  7. LEVOTHYROXINE SODIUM [Concomitant]
  8. DEXAMETHASONE [Suspect]
     Dosage: 40 MILLIGRAM
     Route: 065
     Dates: start: 20110615
  9. LOVENOX [Concomitant]
  10. VELCADE [Suspect]
     Dosage: 1.5 MILLIGRAM
     Route: 065
     Dates: start: 20110705
  11. LANSOPRAZOLE [Concomitant]
  12. ACEBUTOLOL [Concomitant]
  13. ARIMIDEX [Concomitant]
  14. DEXAMETHASONE [Suspect]
     Dosage: 40 MILLIGRAM
     Route: 065
     Dates: start: 20110705
  15. CRESTOR [Concomitant]
  16. VELCADE [Suspect]
     Dosage: 2 MILLIGRAM
     Route: 065
     Dates: start: 20110615
  17. LYRICA [Concomitant]

REACTIONS (2)
  - GENERAL PHYSICAL HEALTH DETERIORATION [None]
  - NEUROPATHY PERIPHERAL [None]
